FAERS Safety Report 14242279 (Version 1)
Quarter: 2017Q4

REPORT INFORMATION
  Report Type: Spontaneous
  Country: US (occurrence: US)
  Receive Date: 20171130
  Receipt Date: 20171130
  Transmission Date: 20180321
  Serious: Yes (Other)
  Sender: FDA-Public Use
  Company Number: None

PATIENT
  Age: 61 Year
  Sex: Male
  Weight: 92.99 kg

DRUGS (19)
  1. ZYTIGA [Suspect]
     Active Substance: ABIRATERONE ACETATE
     Indication: PROSTATE CANCER
     Route: 048
     Dates: start: 20170928, end: 20171130
  2. VITAMIN C [Concomitant]
     Active Substance: ASCORBIC ACID
  3. BIOTIN [Concomitant]
     Active Substance: BIOTIN
  4. ATORVASTATIN [Concomitant]
     Active Substance: ATORVASTATIN
  5. CASODEX [Concomitant]
     Active Substance: BICALUTAMIDE
  6. ZINC. [Concomitant]
     Active Substance: ZINC
  7. CALCIUM [Concomitant]
     Active Substance: CALCIUM
  8. LOPRESSOR [Concomitant]
     Active Substance: METOPROLOL TARTRATE
  9. CRANBERRY. [Concomitant]
     Active Substance: CRANBERRY
  10. VITAMIN B COMPLEX [Concomitant]
     Active Substance: CYANOCOBALAMIN\DEXPANTHENOL\NIACINAMIDE\PYRIDOXINE HYDROCHLORIDE\RIBOFLAVIN 5^-PHOSPHATE SODIUM\THIAMINE HYDROCHLORIDE\VITAMIN B COMPLEX
  11. VITAMIN D [Concomitant]
     Active Substance: CHOLECALCIFEROL
  12. MAGNESIUM [Concomitant]
     Active Substance: MAGNESIUM
  13. DEGARELIX [Concomitant]
     Active Substance: DEGARELIX
  14. LISINOPRIL. [Concomitant]
     Active Substance: LISINOPRIL
  15. XGEVA [Concomitant]
     Active Substance: DENOSUMAB
  16. GLUCOSAMINE [Concomitant]
     Active Substance: GLUCOSAMINE
  17. PRILOSEC [Concomitant]
     Active Substance: OMEPRAZOLE MAGNESIUM
  18. ASPIRIN. [Concomitant]
     Active Substance: ASPIRIN
  19. FLOMAX [Concomitant]
     Active Substance: TAMSULOSIN HYDROCHLORIDE

REACTIONS (1)
  - Disease progression [None]

NARRATIVE: CASE EVENT DATE: 20171130
